FAERS Safety Report 6451536-3 (Version None)
Quarter: 2009Q4

REPORT INFORMATION
  Report Type: 
  Country: None (occurrence: None)
  Receive Date: 20091123
  Receipt Date: 20091117
  Transmission Date: 20100525
  Serious: Yes (Other)
  Sender: FDA-Public Use
  Company Number: JP-BRISTOL-MYERS SQUIBB COMPANY-14862619

PATIENT
  Age: 51 Year
  Sex: Female

DRUGS (5)
  1. TAXOL [Suspect]
     Indication: BREAST CANCER
     Dosage: 12COURSES
     Route: 041
  2. CYCLOPHOSPHAMIDE [Suspect]
     Indication: BREAST CANCER
     Dosage: 4 COURSES
  3. EPIRUBICIN [Suspect]
     Indication: BREAST CANCER
     Dosage: 12 COURSES
  4. TAMOXIFEN CITRATE [Suspect]
     Indication: BREAST CANCER
     Route: 048
  5. RADIOTHERAPY [Suspect]
     Indication: BREAST CANCER
     Dosage: 1DF: 50GY

REACTIONS (1)
  - ACUTE PROMYELOCYTIC LEUKAEMIA [None]
